FAERS Safety Report 8134876-1 (Version None)
Quarter: 2012Q1

REPORT INFORMATION
  Report Type: 
  Country: None (occurrence: None)
  Receive Date: 20120210
  Receipt Date: 20120131
  Transmission Date: 20120608
  Serious: Yes (Other)
  Sender: FDA-Public Use
  Company Number: 1186663

PATIENT
  Age: 70 Year
  Sex: Female
  Weight: 40.8 kg

DRUGS (3)
  1. LINEZOLID [Concomitant]
  2. MEROPENEM [Concomitant]
  3. VANCOMYCIN HYDROCHLORIDE [Suspect]
     Indication: STAPHYLOCOCCAL INFECTION
     Dosage: 0.5G B.I.D., INTRAVENOUS DRIP
     Route: 041
     Dates: start: 20110517, end: 20110531

REACTIONS (1)
  - DRUG ERUPTION [None]
